FAERS Safety Report 7782965-3 (Version None)
Quarter: 2011Q3

REPORT INFORMATION
  Report Type: 
  Country: None (occurrence: None)
  Receive Date: 20110928
  Receipt Date: 20110915
  Transmission Date: 20111222
  Serious: Yes (Other)
  Sender: FDA-Public Use
  Company Number: AR-JNJFOC-20110910251

PATIENT
  Age: 80 Year
  Sex: Female
  Weight: 83 kg

DRUGS (6)
  1. TRAMAL PLUS [Suspect]
     Indication: BACK PAIN
     Route: 048
     Dates: start: 20110913
  2. TRAMAL PLUS [Suspect]
     Dosage: 3 TABLETS PER DAY
     Route: 048
     Dates: start: 20110910, end: 20110911
  3. ROSUVASTATIN [Concomitant]
     Route: 065
     Dates: start: 20100101
  4. TEMISARTAN [Concomitant]
     Route: 065
     Dates: start: 20080101
  5. CLONAZEPAM [Concomitant]
     Route: 065
     Dates: start: 20080101
  6. PREGABALIN [Concomitant]
     Route: 065
     Dates: start: 20110910, end: 20110911

REACTIONS (1)
  - DYSLALIA [None]
